FAERS Safety Report 8997097 (Version 1)
Quarter: 2013Q1

REPORT INFORMATION
  Report Type: Spontaneous
  Country: US (occurrence: None)
  Receive Date: 20130102
  Receipt Date: 20130102
  Transmission Date: 20140127
  Serious: Yes (Life-Threatening, Hospitalization)
  Sender: FDA-Public Use
  Company Number: None

PATIENT
  Age: 54 Year
  Sex: Female
  Weight: 74.84 kg

DRUGS (1)
  1. BYDUREON [Suspect]
     Indication: DIABETES MELLITUS
     Dosage: ONCE A WEEK
     Dates: start: 20121105, end: 20121209

REACTIONS (6)
  - Hyperhidrosis [None]
  - Nausea [None]
  - Vomiting [None]
  - Dizziness [None]
  - Pain in extremity [None]
  - Myocardial infarction [None]
